FAERS Safety Report 24850263 (Version 1)
Quarter: 2025Q1

REPORT INFORMATION
  Report Type: Spontaneous
  Country: US (occurrence: None)
  Receive Date: 20250116
  Receipt Date: 20250116
  Transmission Date: 20250409
  Serious: Yes (Disabling, Other)
  Sender: FDA-CTU
  Company Number: None

PATIENT
  Age: 74 Year
  Sex: Female
  Weight: 48.53 kg

DRUGS (22)
  1. PROPOFOL [Suspect]
     Active Substance: PROPOFOL
     Indication: Endoscopy
     Route: 050
     Dates: start: 20241211
  2. PROZAC [Concomitant]
     Active Substance: FLUOXETINE HYDROCHLORIDE
  3. FERROUS SULFATE [Concomitant]
     Active Substance: FERROUS SULFATE
  4. TYLENOL [Concomitant]
     Active Substance: ACETAMINOPHEN
  5. PROBIOTICS NOS [Concomitant]
     Active Substance: PROBIOTICS NOS
  6. METAMUCIL [Concomitant]
     Active Substance: PLANTAGO SEED
  7. MONTELUKAST [Concomitant]
     Active Substance: MONTELUKAST
  8. RESTASIS [Concomitant]
     Active Substance: CYCLOSPORINE
  9. PROAIR HFA [Concomitant]
     Active Substance: ALBUTEROL SULFATE
  10. DUONEB [Concomitant]
     Active Substance: ALBUTEROL SULFATE\IPRATROPIUM BROMIDE
  11. AMITRIPTYLINE [Concomitant]
     Active Substance: AMITRIPTYLINE
  12. VITAMIN D3 [Concomitant]
     Active Substance: CHOLECALCIFEROL
  13. RECLAST [Concomitant]
     Active Substance: ZOLEDRONIC ACID
  14. CALCIUM [Concomitant]
     Active Substance: CALCIUM
  15. IBUPROFEN [Concomitant]
     Active Substance: IBUPROFEN
  16. ASMANEX [Concomitant]
     Active Substance: MOMETASONE FUROATE
  17. VITAMIN C [Concomitant]
     Active Substance: ASCORBIC ACID
  18. DICLOFENAC SODIUM [Concomitant]
     Active Substance: DICLOFENAC SODIUM
  19. ALEVE [Concomitant]
     Active Substance: NAPROXEN SODIUM
  20. COLACE [Concomitant]
     Active Substance: DOCUSATE SODIUM
  21. OPZELURA [Concomitant]
     Active Substance: RUXOLITINIB PHOSPHATE
  22. MIRALAX [Concomitant]
     Active Substance: POLYETHYLENE GLYCOL 3350

REACTIONS (52)
  - Decreased appetite [None]
  - Oropharyngeal pain [None]
  - Chest pain [None]
  - Pain [None]
  - Rash [None]
  - Pruritus [None]
  - Somnolence [None]
  - Dizziness [None]
  - Feeding disorder [None]
  - Odynophagia [None]
  - Weight decreased [None]
  - Brain fog [None]
  - Decreased appetite [None]
  - Ataxia [None]
  - Neuropathy peripheral [None]
  - Dizziness [None]
  - Fatigue [None]
  - Cough [None]
  - Stomatitis [None]
  - Oral mucosal erythema [None]
  - Fatigue [None]
  - Confusional state [None]
  - Gait disturbance [None]
  - Nausea [None]
  - Gastrointestinal disorder [None]
  - Vulvovaginal candidiasis [None]
  - Vision blurred [None]
  - Vomiting [None]
  - Liver function test increased [None]
  - Diplopia [None]
  - Urinary retention [None]
  - Diarrhoea [None]
  - Face oedema [None]
  - Pruritus [None]
  - Lacrimation increased [None]
  - Corneal abrasion [None]
  - Irritability [None]
  - Candida infection [None]
  - Abdominal pain [None]
  - Alopecia [None]
  - Alopecia [None]
  - Eye irritation [None]
  - Staphylococcal infection [None]
  - Hypersensitivity [None]
  - Cyanosis [None]
  - Arthralgia [None]
  - Arthralgia [None]
  - Back pain [None]
  - Tooth abscess [None]
  - Constipation [None]
  - Asthenia [None]
  - Dysphonia [None]

NARRATIVE: CASE EVENT DATE: 20241211
